FAERS Safety Report 18065835 (Version 2)
Quarter: 2020Q3

REPORT INFORMATION
  Report Type: Spontaneous
  Country: PL (occurrence: PL)
  Receive Date: 20200724
  Receipt Date: 20200729
  Transmission Date: 20201103
  Serious: No
  Sender: FDA-Public Use
  Company Number: PL-GLAXOSMITHKLINE-PL2020135772

PATIENT
  Sex: Male

DRUGS (3)
  1. DICLAC [Suspect]
     Active Substance: DICLOFENAC
     Indication: PRODUCT USED FOR UNKNOWN INDICATION
     Dosage: UNK (DICLAC 150 DUO)
     Route: 065
  2. DICLAC DUO [Suspect]
     Active Substance: DICLOFENAC SODIUM
     Indication: NERVE ROOT INJURY
     Dosage: UNK
     Route: 065
  3. MYDOCALM FORTE [Concomitant]
     Indication: PRODUCT USED FOR UNKNOWN INDICATION
     Dosage: UNK
     Route: 065

REACTIONS (1)
  - Dyspnoea [Recovered/Resolved]

NARRATIVE: CASE EVENT DATE: 20200714
